FAERS Safety Report 4865619-2 (Version None)
Quarter: 2005Q4

REPORT INFORMATION
  Report Type: 
  Country: None (occurrence: None)
  Receive Date: 20051221
  Receipt Date: 20051221
  Transmission Date: 20060501
  Serious: No
  Sender: FDA-Public Use
  Company Number: None

PATIENT
  Age: 20 Year
  Sex: Male

DRUGS (1)
  1. ACCUTANE [Suspect]

REACTIONS (13)
  - AMNESIA [None]
  - BLISTER [None]
  - DECREASED ACTIVITY [None]
  - DIARRHOEA [None]
  - DRY EYE [None]
  - EDUCATIONAL PROBLEM [None]
  - FLAT AFFECT [None]
  - MENTAL IMPAIRMENT [None]
  - PERSONALITY CHANGE [None]
  - REGRESSIVE BEHAVIOUR [None]
  - SLEEP DISORDER [None]
  - SOCIAL PROBLEM [None]
  - SOMNOLENCE [None]
